FAERS Safety Report 12632578 (Version 2)
Quarter: 2016Q3

REPORT INFORMATION
  Report Type: Spontaneous
  Country: US (occurrence: US)
  Receive Date: 20160808
  Receipt Date: 20160808
  Transmission Date: 20161109
  Serious: No
  Sender: FDA-Public Use
  Company Number: US-BEH-2015056089

PATIENT
  Sex: Male
  Weight: 137 kg

DRUGS (16)
  1. HIZENTRA [Suspect]
     Active Substance: HUMAN IMMUNOGLOBULIN G
  2. PREDNISONE. [Concomitant]
     Active Substance: PREDNISONE
  3. WELLBUTRIN [Concomitant]
     Active Substance: BUPROPION HYDROCHLORIDE
  4. CLONAZEPAM. [Concomitant]
     Active Substance: CLONAZEPAM
  5. LIDOCAINE/PRILOCAINE [Concomitant]
     Active Substance: LIDOCAINE\PRILOCAINE
  6. HIZENTRA [Suspect]
     Active Substance: HUMAN IMMUNOGLOBULIN G
  7. DIPHENHYDRAMINE. [Concomitant]
     Active Substance: DIPHENHYDRAMINE
  8. MULTIVITAMIN [Concomitant]
     Active Substance: VITAMINS
  9. HIZENTRA [Suspect]
     Active Substance: HUMAN IMMUNOGLOBULIN G
     Indication: IMMUNODEFICIENCY COMMON VARIABLE
     Route: 058
  10. DOXYCYCLINE. [Concomitant]
     Active Substance: DOXYCYCLINE
  11. FISH OIL [Concomitant]
     Active Substance: FISH OIL
  12. ASTELIN [Concomitant]
     Active Substance: AZELASTINE HYDROCHLORIDE
  13. EPIPEN [Concomitant]
     Active Substance: EPINEPHRINE
  14. BACTRIM DS [Concomitant]
     Active Substance: SULFAMETHOXAZOLE\TRIMETHOPRIM
  15. CEFTIN [Concomitant]
     Active Substance: CEFUROXIME AXETIL
  16. LEXAPRO [Concomitant]
     Active Substance: ESCITALOPRAM OXALATE

REACTIONS (1)
  - Nasopharyngitis [Unknown]
